FAERS Safety Report 25140922 (Version 1)
Quarter: 2025Q1

REPORT INFORMATION
  Report Type: Spontaneous
  Country: US (occurrence: None)
  Receive Date: 20250330
  Receipt Date: 20250330
  Transmission Date: 20250409
  Serious: Yes (Life-Threatening)
  Sender: FDA-CTU
  Company Number: None

PATIENT
  Sex: Male

DRUGS (2)
  1. SINGULAIR [Suspect]
     Active Substance: MONTELUKAST SODIUM
     Indication: Allergic cough
     Dates: start: 20220103, end: 20220501
  2. SINGULAIR [Suspect]
     Active Substance: MONTELUKAST SODIUM
     Indication: Seasonal allergy

REACTIONS (13)
  - Mood altered [None]
  - Agitation [None]
  - Food allergy [None]
  - Swelling of eyelid [None]
  - Lip swelling [None]
  - Urticaria [None]
  - Sneezing [None]
  - Cough [None]
  - Ear pain [None]
  - Nausea [None]
  - Abdominal discomfort [None]
  - Paraesthesia oral [None]
  - Pharyngeal paraesthesia [None]
